FAERS Safety Report 8010072-3 (Version None)
Quarter: 2011Q4

REPORT INFORMATION
  Report Type: 
  Country: None (occurrence: None)
  Receive Date: 20111228
  Receipt Date: 20111219
  Transmission Date: 20120403
  Serious: Yes (Other)
  Sender: FDA-Public Use
  Company Number: DE-BRISTOL-MYERS SQUIBB COMPANY-16274177

PATIENT
  Age: 89 Year
  Sex: Female

DRUGS (6)
  1. ONGLYZA [Suspect]
     Indication: DIABETES MELLITUS
     Dosage: 2 DAYS AGO
     Dates: start: 20111101, end: 20111101
  2. AMLODIPINE [Concomitant]
     Indication: HYPERTENSION
     Route: 048
  3. RAMIPRIL [Concomitant]
     Indication: HYPERTENSION
     Route: 048
  4. MELPERONE HCL [Concomitant]
     Indication: DEMENTIA
     Dosage: AT NIGHT
     Route: 048
  5. ACTRAPHANE [Concomitant]
     Indication: DIABETES MELLITUS
     Dosage: ACTRAPHANE 30/70,1 DF: 42UNITS NOS
     Route: 058
  6. INSULIN [Suspect]
     Indication: DIABETES MELLITUS

REACTIONS (1)
  - SOMNOLENCE [None]
